FAERS Safety Report 13790953 (Version 2)
Quarter: 2017Q3

REPORT INFORMATION
  Report Type: Spontaneous
  Country: US (occurrence: US)
  Receive Date: 20170725
  Receipt Date: 20170905
  Transmission Date: 20171127
  Serious: Yes (Other)
  Sender: FDA-Public Use
  Company Number: US-OTSUKA-2017_015957

PATIENT
  Age: 58 Year
  Sex: Female

DRUGS (5)
  1. ABILIFY MAINTENA [Suspect]
     Active Substance: ARIPIPRAZOLE
     Dosage: 300 MG, UNK
     Route: 065
     Dates: start: 201706
  2. CLOZARIL [Concomitant]
     Active Substance: CLOZAPINE
     Indication: PRODUCT USED FOR UNKNOWN INDICATION
     Dosage: UNK
     Route: 065
  3. ABILIFY MAINTENA [Suspect]
     Active Substance: ARIPIPRAZOLE
     Indication: SCHIZOPHRENIA
     Dosage: 400 MG, QM
     Route: 065
  4. ABILIFY MAINTENA [Suspect]
     Active Substance: ARIPIPRAZOLE
     Dosage: 200 MG, UNK
     Route: 065
     Dates: start: 201707
  5. DEPAKOTE [Concomitant]
     Active Substance: DIVALPROEX SODIUM
     Indication: PRODUCT USED FOR UNKNOWN INDICATION
     Dosage: UNK
     Route: 065

REACTIONS (13)
  - Choking [Recovering/Resolving]
  - Adverse drug reaction [Recovering/Resolving]
  - Drooling [Recovering/Resolving]
  - Underdose [Unknown]
  - Fatigue [Recovering/Resolving]
  - Malaise [Recovered/Resolved]
  - Sluggishness [Recovering/Resolving]
  - Weight increased [Unknown]
  - Nausea [Recovered/Resolved]
  - Drug level increased [Recovering/Resolving]
  - Hypersomnia [Recovering/Resolving]
  - Tremor [Recovering/Resolving]
  - Diarrhoea [Recovered/Resolved]

NARRATIVE: CASE EVENT DATE: 201707
